FAERS Safety Report 6244451-1 (Version None)
Quarter: 2009Q2

REPORT INFORMATION
  Report Type: 
  Country: None (occurrence: None)
  Receive Date: 20090623
  Receipt Date: 20090623
  Transmission Date: 20091009
  Serious: Yes (Hospitalization)
  Sender: FDA-Public Use
  Company Number: None

PATIENT
  Sex: Male
  Weight: 25 kg

DRUGS (4)
  1. MERCAPTOPURINE [Suspect]
     Dosage: 66 MG
  2. METHOTREXATE [Suspect]
     Dosage: 12 MG
  3. VINCRISTINE SULFATE [Suspect]
     Dosage: 1.3 MG
  4. DEXAMETHASONE [Suspect]
     Dosage: 2.625 MG

REACTIONS (11)
  - ACUTE RESPIRATORY DISTRESS SYNDROME [None]
  - CENTRAL LINE INFECTION [None]
  - CYTOMEGALOVIRUS TEST POSITIVE [None]
  - NEUTROPENIA [None]
  - PNEUMOMEDIASTINUM [None]
  - PNEUMONIA BACTERIAL [None]
  - PNEUMOPERITONEUM [None]
  - PNEUMOTHORAX [None]
  - RESPIRATORY DISTRESS [None]
  - RESPIRATORY FAILURE [None]
  - STAPHYLOCOCCAL INFECTION [None]
